FAERS Safety Report 9782614 (Version 3)
Quarter: 2014Q2

REPORT INFORMATION
  Report Type: Spontaneous
  Country: IE (occurrence: IE)
  Receive Date: 20131226
  Receipt Date: 20140414
  Transmission Date: 20141212
  Serious: Yes (Other)
  Sender: FDA-Public Use
  Company Number: PHFR2013IE007355

PATIENT
  Age: 39 Year
  Sex: Female

DRUGS (3)
  1. CLOZARIL [Suspect]
     Indication: SCHIZOPHRENIA
     Dosage: UNK UKN, UNK
     Route: 048
     Dates: start: 20030819
  2. CLOZARIL [Suspect]
     Dosage: 350 MG, UNK
     Route: 048
     Dates: start: 2004
  3. SEROXAT [Concomitant]
     Dosage: 20 MG, UNK
     Route: 048
     Dates: start: 2011

REACTIONS (3)
  - Eye haemorrhage [Recovering/Resolving]
  - Myopia [Recovering/Resolving]
  - Retinal haemorrhage [Recovering/Resolving]
